FAERS Safety Report 9131664 (Version 1)
Quarter: 2013Q1

REPORT INFORMATION
  Report Type: Spontaneous
  Country: US (occurrence: US)
  Receive Date: 20130301
  Receipt Date: 20130301
  Transmission Date: 20140127
  Serious: Yes (Hospitalization, Other)
  Sender: FDA-Public Use
  Company Number: US-PFIZER INC-2013072027

PATIENT
  Age: 69 Year
  Sex: Female

DRUGS (2)
  1. AMLODIPINE BESILATE [Suspect]
     Dosage: UNK
     Route: 048
  2. ATENOLOL [Suspect]
     Dosage: UNK
     Route: 048

REACTIONS (8)
  - Overdose [Unknown]
  - Suicide attempt [Recovered/Resolved]
  - Somnolence [Recovered/Resolved]
  - Vomiting [Recovered/Resolved]
  - Depressed level of consciousness [Recovered/Resolved]
  - Shock [Recovered/Resolved]
  - Hypokalaemia [Recovered/Resolved]
  - Ventricular fibrillation [Recovered/Resolved]
